FAERS Safety Report 8966134 (Version 1)
Quarter: 2012Q4

REPORT INFORMATION
  Report Type: 
  Country: US (occurrence: US)
  Receive Date: 20121214
  Receipt Date: 20121214
  Transmission Date: 20130627
  Serious: Yes (Death)
  Sender: FDA-Public Use
  Company Number: US-PERRIGO-12US010491

PATIENT
  Age: 56 Year
  Sex: Female

DRUGS (5)
  1. ACETAMINOPHEN 650MG ER 544 [Suspect]
     Indication: COMPLETED SUICIDE
     Dosage: UNK
     Route: 065
  2. BUTALBITAL [Suspect]
     Indication: COMPLETED SUICIDE
     Dosage: UNK, UNK
     Route: 048
  3. DULOXETINE [Suspect]
     Indication: COMPLETED SUICIDE
     Dosage: UNK, UNK
     Route: 048
  4. METAXALONE [Suspect]
     Indication: COMPLETED SUICIDE
     Dosage: UNK, UNK
     Route: 048
  5. VERAPAMIL [Suspect]
     Indication: COMPLETED SUICIDE
     Dosage: UNK, UNK
     Route: 065

REACTIONS (1)
  - Toxicity to various agents [Fatal]
